FAERS Safety Report 5309628-8 (Version None)
Quarter: 2007Q2

REPORT INFORMATION
  Report Type: 
  Country: None (occurrence: None)
  Receive Date: 20070427
  Receipt Date: 20060522
  Transmission Date: 20071010
  Serious: No
  Sender: FDA-Public Use
  Company Number: US-GLAXOSMITHKLINE-A0607323A

PATIENT

DRUGS (2)
  1. DEXEDRINE [Suspect]
     Indication: NARCOLEPSY
     Route: 048
  2. DEXTROAMPETAMINE SULFATE TAB [Suspect]
     Indication: NARCOLEPSY
     Route: 048

REACTIONS (1)
  - ADVERSE EVENT [None]
